FAERS Safety Report 17004545 (Version 3)
Quarter: 2020Q3

REPORT INFORMATION
  Report Type: Spontaneous
  Country: US (occurrence: US)
  Receive Date: 20191107
  Receipt Date: 20200904
  Transmission Date: 20201102
  Serious: Yes (Other)
  Sender: FDA-Public Use
  Company Number: US-PFIZER INC-2019478097

PATIENT
  Age: 70 Year
  Sex: Female

DRUGS (1)
  1. IBRANCE [Suspect]
     Active Substance: PALBOCICLIB
     Indication: BREAST CANCER FEMALE
     Dosage: 75 MG
     Dates: start: 2014

REACTIONS (9)
  - Fatigue [Not Recovered/Not Resolved]
  - Fall [Unknown]
  - Weight increased [Unknown]
  - Asthenia [Unknown]
  - Chronic kidney disease [Unknown]
  - Bone marrow disorder [Unknown]
  - Dyspnoea [Not Recovered/Not Resolved]
  - Cough [Unknown]
  - Choking [Unknown]
